FAERS Safety Report 9688468 (Version 1)
Quarter: 2013Q4

REPORT INFORMATION
  Report Type: Report from Study
  Country: JP (occurrence: JP)
  Receive Date: 20131114
  Receipt Date: 20131114
  Transmission Date: 20140711
  Serious: Yes (Hospitalization)
  Sender: FDA-Public Use
  Company Number: JP-SA-2013SA116992

PATIENT
  Age: 20 Month
  Sex: Male
  Weight: 10.5 kg

DRUGS (9)
  1. THYMOGLOBULIN [Suspect]
     Indication: BONE MARROW CONDITIONING REGIMEN
     Route: 042
     Dates: start: 20130311, end: 20130312
  2. PROGRAF [Suspect]
     Indication: PROPHYLAXIS AGAINST GRAFT VERSUS HOST DISEASE
     Route: 065
     Dates: start: 20130213
  3. SOLU-MEDROL [Suspect]
     Indication: PROPHYLAXIS AGAINST GRAFT VERSUS HOST DISEASE
     Route: 065
     Dates: start: 20130422, end: 20130424
  4. PREDONINE [Suspect]
     Indication: PROPHYLAXIS AGAINST GRAFT VERSUS HOST DISEASE
     Route: 065
     Dates: start: 20130424
  5. VFEND [Concomitant]
     Indication: BRONCHOPULMONARY ASPERGILLOSIS
     Dates: start: 20130208
  6. VENILON [Concomitant]
     Indication: INFECTION PROPHYLAXIS
     Dates: start: 20130309
  7. ANTITHROMBOTIC AGENTS [Concomitant]
     Indication: PROPHYLAXIS
     Dates: start: 20130329, end: 20130412
  8. FINIBAX [Concomitant]
     Indication: INFECTION PROPHYLAXIS
     Dates: start: 20130330, end: 20130418
  9. NEUTROGIN [Concomitant]
     Indication: INFECTION PROPHYLAXIS
     Dates: start: 20130319

REACTIONS (3)
  - Thrombotic microangiopathy [Recovered/Resolved]
  - Endocarditis [Recovering/Resolving]
  - Post transplant lymphoproliferative disorder [Recovering/Resolving]
